FAERS Safety Report 7028699-4 (Version None)
Quarter: 2010Q4

REPORT INFORMATION
  Report Type: 
  Country: None (occurrence: None)
  Receive Date: 20101005
  Receipt Date: 20100923
  Transmission Date: 20110411
  Serious: Yes (Other)
  Sender: FDA-Public Use
  Company Number: US-PFIZER INC-2010121919

PATIENT
  Sex: Female
  Weight: 70.295 kg

DRUGS (9)
  1. LYRICA [Suspect]
     Indication: FIBROMYALGIA
     Dosage: 75 MG, DAILY
     Route: 048
     Dates: start: 20080101
  2. LOVAZA [Suspect]
     Dosage: 2000 MG, 3X/DAY
  3. ADVENT [Concomitant]
     Dosage: UNK
  4. TRILEPTAL [Concomitant]
     Dosage: 600 MG, UNK
  5. VITAMIN D [Concomitant]
     Dosage: UNK
  6. VITAMIN B-12 [Concomitant]
     Dosage: UNK
  7. PROBENECID [Concomitant]
     Dosage: UNK
  8. COENZYME Q10 [Concomitant]
     Dosage: UNK
  9. ANTIOXIDANTS [Concomitant]
     Dosage: UNK

REACTIONS (9)
  - ALOPECIA [None]
  - BLOOD ARSENIC INCREASED [None]
  - FATIGUE [None]
  - FIBROMYALGIA [None]
  - GAIT DISTURBANCE [None]
  - INSOMNIA [None]
  - MIDDLE INSOMNIA [None]
  - PAIN [None]
  - WEIGHT INCREASED [None]
